FAERS Safety Report 5490448-9 (Version None)
Quarter: 2007Q4

REPORT INFORMATION
  Report Type: 
  Country: None (occurrence: None)
  Receive Date: 20071017
  Receipt Date: 20071017
  Transmission Date: 20080405
  Serious: Yes (Hospitalization)
  Sender: FDA-Public Use
  Company Number: None

PATIENT
  Age: 60 Year
  Sex: Male

DRUGS (1)
  1. WARFARIN SODIUM [Suspect]
     Indication: AORTIC VALVE REPLACEMENT
     Dosage: 4MG EVERY DAY PO
     Route: 048
     Dates: start: 20061228

REACTIONS (5)
  - ANAEMIA [None]
  - DRUG TOXICITY [None]
  - FAECES DISCOLOURED [None]
  - INTERNATIONAL NORMALISED RATIO ABNORMAL [None]
  - OCCULT BLOOD POSITIVE [None]
